FAERS Safety Report 17849442 (Version 1)
Quarter: 2020Q2

REPORT INFORMATION
  Report Type: Spontaneous
  Country: US (occurrence: US)
  Receive Date: 20200601
  Receipt Date: 20200601
  Transmission Date: 20200714
  Serious: Yes (Other)
  Sender: FDA-Public Use
  Company Number: None

PATIENT
  Age: 77 Year
  Sex: Male
  Weight: 78 kg

DRUGS (1)
  1. REMDESIVIR. [Suspect]
     Active Substance: REMDESIVIR
     Indication: COVID-19
     Route: 042
     Dates: start: 20200524, end: 20200531

REACTIONS (7)
  - Therapy interrupted [None]
  - Blood creatinine increased [None]
  - Acute kidney injury [None]
  - Oliguria [None]
  - Creatinine renal clearance decreased [None]
  - Renal impairment [None]
  - Dialysis [None]

NARRATIVE: CASE EVENT DATE: 20200531
